FAERS Safety Report 6374384-1 (Version None)
Quarter: 2009Q3

REPORT INFORMATION
  Report Type: 
  Country: None (occurrence: None)
  Receive Date: 20090924
  Receipt Date: 20090922
  Transmission Date: 20100115
  Serious: Yes (Other)
  Sender: FDA-Public Use
  Company Number: US-TEVA-207986USA

PATIENT
  Sex: Female

DRUGS (1)
  1. AMPHETAMINES [Suspect]
     Indication: ATTENTION DEFICIT/HYPERACTIVITY DISORDER

REACTIONS (8)
  - AGITATION [None]
  - AMNESIA [None]
  - ANXIETY [None]
  - DRY MOUTH [None]
  - HYPERHIDROSIS [None]
  - SUICIDAL IDEATION [None]
  - VERTIGO [None]
  - VISION BLURRED [None]
